FAERS Safety Report 6189886-0 (Version None)
Quarter: 2009Q2

REPORT INFORMATION
  Report Type: 
  Country: None (occurrence: None)
  Receive Date: 20090514
  Receipt Date: 20090504
  Transmission Date: 20091009
  Serious: Yes (Other)
  Sender: FDA-Public Use
  Company Number: US-AMGEN-COG345627

PATIENT
  Sex: Female

DRUGS (1)
  1. ENBREL [Suspect]
     Indication: RHEUMATOID ARTHRITIS
     Route: 058

REACTIONS (5)
  - BRONCHITIS [None]
  - COUGH [None]
  - INFLAMMATORY PAIN [None]
  - LOWER RESPIRATORY TRACT INFLAMMATION [None]
  - MUSCULOSKELETAL CHEST PAIN [None]
